FAERS Safety Report 23212971 (Version 1)
Quarter: 2023Q4

REPORT INFORMATION
  Report Type: Spontaneous
  Country: US (occurrence: US)
  Receive Date: 20231121
  Receipt Date: 20231121
  Transmission Date: 20240109
  Serious: No
  Sender: FDA-Public Use
  Company Number: US-FreseniusKabi-FK202318385

PATIENT
  Age: 38 Year
  Sex: Female

DRUGS (6)
  1. CHORIONIC GONADOTROPIN [Suspect]
     Active Substance: CHORIOGONADOTROPIN ALFA
     Indication: Infertility female
     Dosage: PRESCRIBED DOSE: 15,000 UNITS, FREQUENCY: ONCE. SELF-ADMINISTERED THE FIRST PART OF HER DOSE: 10,000
     Route: 030
     Dates: start: 20231102, end: 20231103
  2. CHORIONIC GONADOTROPIN [Suspect]
     Active Substance: CHORIOGONADOTROPIN ALFA
     Dosage: ONCE
     Route: 030
     Dates: start: 20231103, end: 20231103
  3. Microdose Lupron [Concomitant]
     Indication: Product used for unknown indication
  4. GONAL-F [Concomitant]
     Active Substance: FOLLITROPIN
     Indication: Product used for unknown indication
  5. MENOPUR [Concomitant]
     Active Substance: FOLLITROPIN\LUTEINIZING HORMONE
     Indication: Product used for unknown indication
  6. OMNITROPE [Concomitant]
     Active Substance: SOMATROPIN
     Indication: Product used for unknown indication

REACTIONS (3)
  - Incorrect dose administered [Unknown]
  - Product preparation issue [Unknown]
  - Anovulatory cycle [Unknown]

NARRATIVE: CASE EVENT DATE: 20231102
